FAERS Safety Report 25838496 (Version 2)
Quarter: 2025Q4

REPORT INFORMATION
  Report Type: Spontaneous
  Country: US (occurrence: US)
  Receive Date: 20250923
  Receipt Date: 20251222
  Transmission Date: 20260117
  Serious: No
  Sender: BRISTOL-MYERS SQUIBB COMPANY
  Company Number: US-BRISTOL-MYERS SQUIBB COMPANY-2025-130673

PATIENT
  Age: 61 Year
  Sex: Male

DRUGS (2)
  1. POMALYST [Suspect]
     Active Substance: POMALIDOMIDE
     Indication: Plasma cell myeloma
     Dosage: FREQUENCY: DAILY FOR 21 DAYS
     Route: 048
     Dates: start: 202507
  2. POMALYST [Suspect]
     Active Substance: POMALIDOMIDE
     Dosage: FREQ: FOR 21 DAYS
     Route: 048
     Dates: start: 202507

REACTIONS (4)
  - Dry mouth [Unknown]
  - Nasal dryness [Unknown]
  - Influenza [Unknown]
  - Cough [Unknown]

NARRATIVE: CASE EVENT DATE: 20251201
